FAERS Safety Report 5351036-8 (Version None)
Quarter: 2007Q2

REPORT INFORMATION
  Report Type: 
  Country: None (occurrence: None)
  Receive Date: 20070608
  Receipt Date: 20070525
  Transmission Date: 20071010
  Serious: Yes (Death, Hospitalization)
  Sender: FDA-Public Use
  Company Number: JP-ROCHE-499815

PATIENT
  Age: 70 Year
  Sex: Male

DRUGS (2)
  1. TICLOPIDINE HCL [Suspect]
     Indication: ANTIPLATELET THERAPY
     Route: 065
  2. ASPIRIN [Suspect]
     Indication: ANTIPLATELET THERAPY
     Route: 065

REACTIONS (3)
  - HEPATIC FUNCTION ABNORMAL [None]
  - MULTI-ORGAN FAILURE [None]
  - SEPSIS [None]
